FAERS Safety Report 8226080-3 (Version None)
Quarter: 2012Q1

REPORT INFORMATION
  Report Type: 
  Country: None (occurrence: None)
  Receive Date: 20120307
  Receipt Date: 20110114
  Transmission Date: 20120608
  Serious: Yes (Other)
  Sender: FDA-Public Use
  Company Number: ABCOD-11-0054

PATIENT
  Age: 62 Year
  Sex: Female

DRUGS (10)
  1. XANAX [Concomitant]
  2. COMPAZINE [Concomitant]
  3. ATENOLOL [Concomitant]
  4. HYDROCHLOROTHIAZIDE [Concomitant]
  5. POTASSIUM CHLORIDE [Concomitant]
  6. KYTRIL [Concomitant]
  7. DEXAMETHASONE [Concomitant]
  8. AMEND [Concomitant]
  9. ABRAXANE [Suspect]
     Indication: PRODUCT USED FOR UNKNOWN INDICATION
     Dosage: IV
     Route: 042
     Dates: start: 20110105, end: 20110105
  10. ALOXI [Concomitant]

REACTIONS (2)
  - DYSPNOEA [None]
  - FLUSHING [None]
